FAERS Safety Report 10122229 (Version 2)
Quarter: 2014Q4

REPORT INFORMATION
  Report Type: Other
  Country: US (occurrence: US)
  Receive Date: 20140427
  Receipt Date: 20141229
  Transmission Date: 20150528
  Serious: Yes (Hospitalization, Other)
  Sender: FDA-Public Use
  Company Number: US-GSKPPD-2014GSK021959

PATIENT
  Age: 61 Year
  Sex: Female

DRUGS (6)
  1. FUROSEMIDE. [Concomitant]
     Active Substance: FUROSEMIDE
  2. AMLODIPINE BESYLATE AND BENAZEPRIL HCL [Concomitant]
     Active Substance: AMLODIPINE BESYLATE\BENAZEPRIL HYDROCHLORIDE
     Dosage: 10/40MG
  3. AVANDIA [Suspect]
     Active Substance: ROSIGLITAZONE MALEATE
     Indication: DIABETES MELLITUS
     Dosage: DATES OF AVANDIA USE COULD NOT BE CONFIRMED IN RECORDS REVIEWED
     Route: 048
  4. CLOPIDOGREL [Concomitant]
     Active Substance: CLOPIDOGREL BISULFATE
  5. TRANDOLAPRIL AND VERAPAMIL HYDROCHLORIDE [Concomitant]
     Active Substance: TRANDOLAPRIL\VERAPAMIL HYDROCHLORIDE
     Dosage: 2/240MG
  6. METOPROLOL SUCCINATE. [Concomitant]
     Active Substance: METOPROLOL SUCCINATE

REACTIONS (2)
  - Angina pectoris [Recovered/Resolved]
  - Cerebrovascular accident [Unknown]

NARRATIVE: CASE EVENT DATE: 20070822
